FAERS Safety Report 9193948 (Version 2)
Quarter: 2013Q2

REPORT INFORMATION
  Report Type: Spontaneous
  Country: IT (occurrence: IT)
  Receive Date: 20130327
  Receipt Date: 20130519
  Transmission Date: 20140414
  Serious: Yes (Death)
  Sender: FDA-Public Use
  Company Number: IT-BRISTOL-MYERS SQUIBB COMPANY-18707836

PATIENT
  Age: 78 Year
  Sex: Male

DRUGS (3)
  1. METFORMIN HCL [Suspect]
     Indication: TYPE 2 DIABETES MELLITUS
     Route: 048
     Dates: start: 20120101, end: 20130128
  2. ENAPREN [Concomitant]
  3. ACETYLSALICYLIC ACID [Concomitant]

REACTIONS (2)
  - Prerenal failure [Fatal]
  - Lactic acidosis [Fatal]
